FAERS Safety Report 14951867 (Version 1)
Quarter: 2018Q2

REPORT INFORMATION
  Report Type: Spontaneous
  Country: US (occurrence: US)
  Receive Date: 20180530
  Receipt Date: 20180530
  Transmission Date: 20180711
  Serious: No
  Sender: FDA-Public Use
  Company Number: US-WEST-WARD PHARMACEUTICALS CORP.-US-H14001-18-03157

PATIENT
  Sex: Male

DRUGS (1)
  1. TESTOSTERONE CYPIONATE. [Suspect]
     Active Substance: TESTOSTERONE CYPIONATE
     Indication: HORMONE REPLACEMENT THERAPY
     Route: 030

REACTIONS (5)
  - Headache [Recovered/Resolved]
  - Muscle mass [Unknown]
  - Application site pain [Recovered/Resolved]
  - Muscle contractions involuntary [Unknown]
  - Blood pressure increased [Unknown]
